FAERS Safety Report 23780342 (Version 2)
Quarter: 2024Q2

REPORT INFORMATION
  Report Type: Spontaneous
  Country: CA (occurrence: CA)
  Receive Date: 20240424
  Receipt Date: 20240527
  Transmission Date: 20240716
  Serious: Yes (Death, Hospitalization)
  Sender: FDA-Public Use
  Company Number: CA-ARCUTIS BIOTHERAPEUTICS INC-2024AER000115

PATIENT

DRUGS (1)
  1. ZORYVE [Suspect]
     Active Substance: ROFLUMILAST
     Indication: Psoriasis
     Dosage: UNK, BID
     Route: 061
     Dates: start: 202403, end: 2024

REACTIONS (6)
  - Death [Fatal]
  - Weight decreased [Unknown]
  - Sleep deficit [Unknown]
  - Diarrhoea [Unknown]
  - Nausea [Unknown]
  - Headache [Unknown]

NARRATIVE: CASE EVENT DATE: 20240301
